FAERS Safety Report 16856914 (Version 1)
Quarter: 2019Q3

REPORT INFORMATION
  Report Type: Spontaneous
  Country: GB (occurrence: GB)
  Receive Date: 20190926
  Receipt Date: 20190926
  Transmission Date: 20191005
  Serious: Yes (Other)
  Sender: FDA-Public Use
  Company Number: GB-MYLANLABS-2019M1089169

PATIENT
  Age: 75 Year
  Sex: Female
  Weight: 92 kg

DRUGS (15)
  1. DOXYCYCLINE. [Suspect]
     Active Substance: DOXYCYCLINE
     Indication: PRODUCT USED FOR UNKNOWN INDICATION
     Dosage: 200 MILLIGRAM, QD,AS DIRECTED BY DERMATOLOGISTS
     Dates: start: 20190131
  2. VENTOLIN [Concomitant]
     Active Substance: ALBUTEROL SULFATE
     Dosage: 1 DOSAGE FORM, 3-4 TIMES/DAY
     Route: 055
     Dates: start: 20180305
  3. SERETIDE [Concomitant]
     Active Substance: FLUTICASONE PROPIONATE\SALMETEROL XINAFOATE
     Dosage: 4 DOSAGE FORM, QD
     Route: 055
     Dates: start: 20180305
  4. AMITRIPTYLINE HYDROCHLORIDE. [Concomitant]
     Active Substance: AMITRIPTYLINE HYDROCHLORIDE
     Dosage: USE AS DIRECTED
     Dates: start: 20180305
  5. DERMOL                             /01330701/ [Concomitant]
     Dosage: USE AS DIRECTED
     Dates: start: 20190402, end: 20190403
  6. FUROSEMIDE. [Concomitant]
     Active Substance: FUROSEMIDE
     Dosage: 1 DOSAGE FORM, QD
     Dates: start: 20180416
  7. UNIPHYLLIN [Concomitant]
     Active Substance: THEOPHYLLINE ANHYDROUS
     Dosage: 1 DOSAGE FORM, BID
     Dates: start: 20180725
  8. BISOPROLOL [Concomitant]
     Active Substance: BISOPROLOL
     Dosage: 1 DOSAGE FORM, QD
     Dates: start: 20180305
  9. OSTEOCAPS [Concomitant]
     Dosage: 2 DOSAGE FORM, QW
     Dates: start: 20180305
  10. LANSOPRAZOLE. [Concomitant]
     Active Substance: LANSOPRAZOLE
     Dosage: 1 DOSAGE FORM, QD
     Dates: start: 20180305
  11. SALBUTAMOL [Concomitant]
     Active Substance: ALBUTEROL
     Dosage: 2 DOSAGE FORM, PRN
     Route: 055
     Dates: start: 20180305
  12. IPRATROPIUM BROMIDE. [Concomitant]
     Active Substance: IPRATROPIUM BROMIDE
     Dosage: USE AS DIRECTED
     Dates: start: 20180305
  13. MICONAZOLE. [Concomitant]
     Active Substance: MICONAZOLE
     Dosage: APPLY
     Dates: start: 20190403, end: 20190410
  14. PREDNISOLONE. [Concomitant]
     Active Substance: PREDNISOLONE
     Dosage: USE AS DIRECTED
     Dates: start: 20190402, end: 20190403
  15. APIXABAN [Concomitant]
     Active Substance: APIXABAN
     Dosage: 2 DOSAGE FORM, QD
     Dates: start: 20180305

REACTIONS (1)
  - Malaise [Recovered/Resolved]
